FAERS Safety Report 4285650-8 (Version None)
Quarter: 2004Q1

REPORT INFORMATION
  Report Type: 
  Country: None (occurrence: None)
  Receive Date: 20040203
  Receipt Date: 20040126
  Transmission Date: 20041129
  Serious: Yes (Other)
  Sender: FDA-Public Use
  Company Number: BE-JNJFOC-20031203403

PATIENT
  Age: 30 Year
  Sex: Male

DRUGS (1)
  1. SPORANOX [Suspect]
     Dosage: ORAL
     Route: 048
     Dates: start: 20030101

REACTIONS (1)
  - INFERTILITY MALE [None]
